FAERS Safety Report 14197901 (Version 2)
Quarter: 2017Q4

REPORT INFORMATION
  Report Type: Report from Study
  Country: CA (occurrence: CA)
  Receive Date: 20171117
  Receipt Date: 20171122
  Transmission Date: 20180321
  Serious: Yes (Hospitalization, Other)
  Sender: FDA-Public Use
  Company Number: CA-ROCHE-1930011

PATIENT
  Age: 56 Year
  Sex: Female

DRUGS (7)
  1. CELLCEPT [Concomitant]
     Active Substance: MYCOPHENOLATE MOFETIL\MYCOPHENOLATE MOFETIL HYDROCHLORIDE
  2. RITUXAN [Suspect]
     Active Substance: RITUXIMAB
     Indication: IDIOPATHIC INTERSTITIAL PNEUMONIA
  3. ACETAMINOPHEN. [Concomitant]
     Active Substance: ACETAMINOPHEN
     Indication: PREMEDICATION
     Route: 048
     Dates: start: 20170501
  4. RITUXAN [Suspect]
     Active Substance: RITUXIMAB
     Indication: INTERSTITIAL LUNG DISEASE
     Dosage: LAST RITUXAN INFUSION ON 15/MAY/2017.
     Route: 042
     Dates: start: 20170501
  5. RITUXAN [Suspect]
     Active Substance: RITUXIMAB
     Indication: SJOGREN^S SYNDROME
  6. METHYLPREDNISOLONE. [Concomitant]
     Active Substance: METHYLPREDNISOLONE
     Indication: PREMEDICATION
     Route: 042
     Dates: start: 20170501
  7. DIPHENHYDRAMINE HYDROCHLORIDE. [Concomitant]
     Active Substance: DIPHENHYDRAMINE HYDROCHLORIDE
     Indication: PREMEDICATION
     Route: 042
     Dates: start: 20170501

REACTIONS (22)
  - Headache [Recovered/Resolved]
  - Hypersensitivity [Unknown]
  - Pyrexia [Recovered/Resolved]
  - Dysphonia [Recovered/Resolved]
  - Muscle spasms [Recovered/Resolved]
  - Trismus [Recovered/Resolved]
  - Platelet count decreased [Unknown]
  - Arthritis [Unknown]
  - Insomnia [Recovered/Resolved]
  - Acne [Recovered/Resolved]
  - Malaise [Recovered/Resolved]
  - Incorrect drug administration rate [Unknown]
  - Alopecia [Unknown]
  - Chills [Recovered/Resolved]
  - Stress [Unknown]
  - Rash [Recovered/Resolved]
  - White blood cell count decreased [Unknown]
  - Anxiety [Unknown]
  - Infusion related reaction [Recovered/Resolved]
  - Myalgia [Recovered/Resolved]
  - Leukopenia [Unknown]
  - Thrombocytopenia [Unknown]

NARRATIVE: CASE EVENT DATE: 201705
